FAERS Safety Report 20437051 (Version 1)
Quarter: 2022Q1

REPORT INFORMATION
  Report Type: Spontaneous
  Country: US (occurrence: None)
  Receive Date: 20220204
  Receipt Date: 20220204
  Transmission Date: 20220423
  Serious: Yes (Disabling)
  Sender: FDA-Public Use
  Company Number: None

PATIENT
  Age: 26 Year
  Sex: Female
  Weight: 49.5 kg

DRUGS (2)
  1. CIPROFLOXACIN [Suspect]
     Active Substance: CIPROFLOXACIN
     Indication: Urinary tract infection
     Dosage: FREQUENCY : TWICE A DAY;?
     Route: 048
     Dates: start: 20220130, end: 20220131
  2. MELATONIN [Concomitant]
     Active Substance: MELATONIN

REACTIONS (7)
  - Disability [None]
  - Gait disturbance [None]
  - Product label issue [None]
  - Tendonitis [None]
  - Carpal tunnel syndrome [None]
  - Neuralgia [None]
  - Impaired quality of life [None]

NARRATIVE: CASE EVENT DATE: 20220130
